FAERS Safety Report 9482035 (Version 2)
Quarter: 2013Q4

REPORT INFORMATION
  Report Type: Report from Study
  Country: CA (occurrence: CA)
  Receive Date: 20130828
  Receipt Date: 20131029
  Transmission Date: 20140711
  Serious: Yes (Hospitalization)
  Sender: FDA-Public Use
  Company Number: CA-JNJFOC-20130809620

PATIENT
  Age: 15 Year
  Sex: Male
  Weight: 28 kg

DRUGS (4)
  1. REMICADE [Suspect]
     Indication: CROHN^S DISEASE
     Route: 042
  2. REMICADE [Suspect]
     Indication: CROHN^S DISEASE
     Route: 042
     Dates: start: 20121002
  3. HYDROCORTISONE [Concomitant]
     Indication: PREMEDICATION
     Dosage: 25 (UNITS UNSPECIFIED)
     Route: 065
  4. TOTAL PARENTERAL NUTRITION [Concomitant]
     Route: 065

REACTIONS (2)
  - Gastrointestinal tube insertion [Unknown]
  - Ileostomy [Unknown]
